FAERS Safety Report 5847613-8 (Version None)
Quarter: 2008Q3

REPORT INFORMATION
  Report Type: 
  Country: None (occurrence: None)
  Receive Date: 20080815
  Receipt Date: 20080815
  Transmission Date: 20090109
  Serious: Yes (Other)
  Sender: FDA-Public Use
  Company Number: None

PATIENT
  Sex: Female
  Weight: 96.1626 kg

DRUGS (1)
  1. CITALOPRAM HYDROBROMIDE [Suspect]
     Indication: DEPRESSION
     Dosage: 20 MG ONE QD PO
     Route: 048
     Dates: start: 20080101, end: 20080601

REACTIONS (4)
  - FEAR [None]
  - NIGHT SWEATS [None]
  - NIGHTMARE [None]
  - PHARMACEUTICAL PRODUCT COMPLAINT [None]
